FAERS Safety Report 19738515 (Version 2)
Quarter: 2021Q3

REPORT INFORMATION
  Report Type: Spontaneous
  Country: DE (occurrence: DE)
  Receive Date: 20210823
  Receipt Date: 20210930
  Transmission Date: 20211014
  Serious: Yes (Hospitalization)
  Sender: FDA-Public Use
  Company Number: DE-MYLANLABS-2021M1054296

PATIENT
  Age: 75 Year
  Sex: Male

DRUGS (11)
  1. PHENPROCOUMON [Concomitant]
     Active Substance: PHENPROCOUMON
     Dosage: 3 MG, NACH INR
  2. BRIMICA GENUAIR [Concomitant]
     Active Substance: ACLIDINIUM BROMIDE\FORMOTEROL FUMARATE
     Dosage: 340|12 ?G, 1?0?1?0
  3. PANTOPRAZOL                        /01263201/ [Concomitant]
     Active Substance: PANTOPRAZOLE
     Dosage: 40 MG, 1?0?0?0
  4. KALINOR                            /00031402/ [Concomitant]
     Active Substance: POTASSIUM CHLORIDE
     Dosage: UNK
  5. ENTRESTO [Concomitant]
     Active Substance: SACUBITRIL\VALSARTAN
     Dosage: 24|26 MG, 0.5?0?0.5?0
  6. METOPROLOL. [Suspect]
     Active Substance: METOPROLOL
     Indication: PRODUCT USED FOR UNKNOWN INDICATION
     Dosage: 95 MILLIGRAM (95 MG, 0.5?0?0?0)
  7. TORASEMID [Concomitant]
     Active Substance: TORSEMIDE
     Dosage: 20 MG, 1?0?0?0
  8. DIGITOXIN [Concomitant]
     Active Substance: DIGITOXIN
     Dosage: 0.1 MG, 1?0?0?0
  9. FENOTEROL                          /00336702/ [Concomitant]
     Dosage: UNK
  10. ALLOPURINOL. [Concomitant]
     Active Substance: ALLOPURINOL
     Dosage: 300 MG, 1?0?0?0
  11. MIFLONIDE BREEZHALER [Concomitant]
     Active Substance: BUDESONIDE
     Dosage: 200 ?G, 1?0?1?0

REACTIONS (3)
  - Limb injury [Unknown]
  - Wound [Unknown]
  - Pain [Unknown]
